FAERS Safety Report 18818139 (Version 2)
Quarter: 2021Q1

REPORT INFORMATION
  Report Type: Spontaneous
  Country: US (occurrence: US)
  Receive Date: 20210201
  Receipt Date: 20210204
  Transmission Date: 20210419
  Serious: Yes (Other)
  Sender: FDA-Public Use
  Company Number: US-OMEROS CORPORATION-2021OME00001

PATIENT
  Age: 79 Year
  Sex: Female

DRUGS (1)
  1. OMIDRIA [Suspect]
     Active Substance: KETOROLAC\PHENYLEPHRINE
     Indication: MIOSIS
     Dosage: 1 ML (UNDILUTED), ONCE
     Route: 031
     Dates: start: 20210121, end: 20210121

REACTIONS (2)
  - Corneal degeneration [Unknown]
  - Product administration error [Recovered/Resolved]

NARRATIVE: CASE EVENT DATE: 20210121
